FAERS Safety Report 9472062 (Version 1)
Quarter: 2013Q3

REPORT INFORMATION
  Report Type: Spontaneous
  Country: DE (occurrence: DE)
  Receive Date: 20130823
  Receipt Date: 20130823
  Transmission Date: 20140515
  Serious: Yes (Other)
  Sender: FDA-Public Use
  Company Number: DE-JNJFOC-20130806173

PATIENT
  Sex: Male

DRUGS (1)
  1. REACTINE DUO [Suspect]
     Indication: MULTIPLE ALLERGIES
     Dosage: 1 OR 2 TABLETS
     Route: 048

REACTIONS (1)
  - Gout [Unknown]
